FAERS Safety Report 10557883 (Version 1)
Quarter: 2014Q4

REPORT INFORMATION
  Report Type: Spontaneous
  Country: US (occurrence: US)
  Receive Date: 20141031
  Receipt Date: 20141031
  Transmission Date: 20150529
  Serious: Yes (Other)
  Sender: FDA-Public Use
  Company Number: US-PFIZER INC-2014298140

PATIENT
  Age: 81 Year
  Sex: Female
  Weight: 71.2 kg

DRUGS (5)
  1. CALAN SR [Suspect]
     Active Substance: VERAPAMIL HYDROCHLORIDE
     Indication: MYOCARDIAL INFARCTION
     Dosage: 180 MG, 2X/DAY
     Dates: start: 1993
  2. CALAN SR [Suspect]
     Active Substance: VERAPAMIL HYDROCHLORIDE
     Dosage: 360 MG, DAILY (1 TABLET IN THE MORNING, HALF TABLET AT NIGTH)
  3. CALAN SR [Suspect]
     Active Substance: VERAPAMIL HYDROCHLORIDE
     Dosage: 120 MG, UNK
  4. CALAN SR [Suspect]
     Active Substance: VERAPAMIL HYDROCHLORIDE
     Dosage: 360 MG, DAILY (HALF TABLET THRICE DAILY)
     Dates: start: 20141009
  5. CALAN SR [Suspect]
     Active Substance: VERAPAMIL HYDROCHLORIDE
     Dosage: 240 MG, 1X/DAY
     Dates: start: 20141001

REACTIONS (9)
  - Fatigue [Not Recovered/Not Resolved]
  - Breast disorder [Unknown]
  - Personality disorder [Not Recovered/Not Resolved]
  - Malaise [Not Recovered/Not Resolved]
  - Feeling abnormal [Not Recovered/Not Resolved]
  - Product coating issue [Unknown]
  - Pain in extremity [Not Recovered/Not Resolved]
  - Activities of daily living impaired [Not Recovered/Not Resolved]
  - Drug intolerance [Not Recovered/Not Resolved]
